FAERS Safety Report 12160224 (Version 3)
Quarter: 2016Q1

REPORT INFORMATION
  Report Type: Spontaneous
  Country: JP (occurrence: JP)
  Receive Date: 20160308
  Receipt Date: 20160323
  Transmission Date: 20160526
  Serious: Yes (Other)
  Sender: FDA-Public Use
  Company Number: JP-BIOCRYST PHARMACEUTICALS, INC.-2016BCR00079

PATIENT
  Age: 44 Year
  Sex: Female

DRUGS (2)
  1. RAPIACTA [Suspect]
     Active Substance: PERAMIVIR
     Indication: INFLUENZA
     Dosage: 300 MG, ONCE
     Route: 042
     Dates: start: 20160219, end: 20160219
  2. HUMALOG [Concomitant]
     Active Substance: INSULIN LISPRO
     Indication: TYPE 1 DIABETES MELLITUS
     Dosage: 42 IU, 1X/DAY
     Route: 058
     Dates: start: 20020906

REACTIONS (1)
  - Generalised oedema [Recovering/Resolving]

NARRATIVE: CASE EVENT DATE: 20160219
